FAERS Safety Report 7121081-0 (Version None)
Quarter: 2010Q4

REPORT INFORMATION
  Report Type: 
  Country: None (occurrence: None)
  Receive Date: 20101124
  Receipt Date: 20101116
  Transmission Date: 20110411
  Serious: Yes (Hospitalization)
  Sender: FDA-Public Use
  Company Number: JP-BRISTOL-MYERS SQUIBB COMPANY-15357353

PATIENT
  Age: 73 Year
  Sex: Female
  Weight: 59 kg

DRUGS (6)
  1. ERBITUX [Suspect]
     Indication: RECTAL CANCER
     Dosage: THERAPY DATES:11AUG10-11AUG10 RECENT INF:01SEP10-01SEP10(400MG) NO OF INF:2
     Route: 042
     Dates: start: 20100811, end: 20100901
  2. SELENICA-R [Suspect]
     Indication: CONVULSION
     Dosage: TAB RECENT INF:20SEP10 800MG PO
     Route: 048
     Dates: start: 20100920, end: 20101012
  3. IRINOTECAN HCL [Concomitant]
     Indication: RECTAL CANCER
     Route: 042
     Dates: start: 20100811, end: 20100811
  4. FLUOROURACIL [Concomitant]
     Indication: RECTAL CANCER
     Dosage: IV DRIP(1800MG) 11AUG10-12AUG10, IV BOLUS
     Route: 040
     Dates: start: 20100811, end: 20100812
  5. LEUCOVORIN CALCIUM [Concomitant]
     Indication: RECTAL CANCER
     Route: 042
     Dates: start: 20100811, end: 20100811
  6. DECADRON [Concomitant]
     Indication: BRAIN OEDEMA
     Dosage: INJ:6.6MG:19-26SP10 4.96MG:27-29SP10 3.3MG:30SP-2OT10 TABS:PO:1MG/2(D),3-19OT10
     Route: 042
     Dates: start: 20100811, end: 20101019

REACTIONS (1)
  - LIVER DISORDER [None]
